FAERS Safety Report 17826400 (Version 1)
Quarter: 2020Q2

REPORT INFORMATION
  Report Type: Spontaneous
  Country: GB (occurrence: GB)
  Receive Date: 20200527
  Receipt Date: 20200527
  Transmission Date: 20200714
  Serious: Yes (Hospitalization)
  Sender: FDA-Public Use
  Company Number: GB-TEVA-2020-GB-1239546

PATIENT
  Age: 86 Year
  Sex: Female

DRUGS (13)
  1. ACETYLSALICYLIC ACID [Concomitant]
     Active Substance: ASPIRIN
     Dosage: 75MG
  2. CODEINE [Concomitant]
     Active Substance: CODEINE
     Dosage: 15MG, 1 OR 2 WHEN NEEDED (MAXIMUM 8 PER DAY).
     Dates: start: 20190829
  3. ALENDRONIC ACID [Suspect]
     Active Substance: ALENDRONIC ACID
     Dosage: ON SUNDAY, 70 MG
     Route: 065
     Dates: start: 2011
  4. LACTULOSE. [Concomitant]
     Active Substance: LACTULOSE
     Dosage: 3.1-3.7G/5ML, 5-10MLS TWICE DAILY 300 ML
     Dates: start: 20190904
  5. ZOLPIDEM [Concomitant]
     Active Substance: ZOLPIDEM TARTRATE
     Dosage: 10 MILLIGRAM DAILY; AT NIGHT
  6. IBUPROFEN. [Concomitant]
     Active Substance: IBUPROFEN
     Dosage: APPLY UP TO THREE TIMES A DAY TO AFFECTED JOINT, 1 DOSAGE FORMS
     Dates: start: 20190815
  7. PREDNISOLONE. [Concomitant]
     Active Substance: PREDNISOLONE
     Dosage: 10 MG
     Dates: start: 20190904
  8. AMLODIPINE [Concomitant]
     Active Substance: AMLODIPINE BESYLATE
     Dosage: 10 MG
  9. CALCIUM AND COLECALCIFEROL [Concomitant]
     Dosage: 400UNIT/1.5G, 2 DOSAGE FORMS
  10. RANITIDINE. [Concomitant]
     Active Substance: RANITIDINE
     Dosage: UP TO TWICE A DAY, 150 MG
  11. LOSARTAN. [Concomitant]
     Active Substance: LOSARTAN
     Dosage: 100 MG
  12. CASSIA [Concomitant]
     Dosage: 7.5MG ONE OR TWO TO BE TAKEN AT NIGHT
     Dates: start: 20190904
  13. SIMVASTATIN. [Concomitant]
     Active Substance: SIMVASTATIN
     Dosage: 20 MILLIGRAM DAILY; AT NIGHT

REACTIONS (2)
  - Femoral neck fracture [Unknown]
  - Arthralgia [Unknown]
